FAERS Safety Report 8296674-8 (Version None)
Quarter: 2012Q2

REPORT INFORMATION
  Report Type: 
  Country: None (occurrence: None)
  Receive Date: 20120418
  Receipt Date: 20120418
  Transmission Date: 20120825
  Serious: Yes (Life-Threatening, Hospitalization)
  Sender: FDA-Public Use
  Company Number: None

PATIENT
  Age: 49 Year
  Sex: Female
  Weight: 129.27 kg

DRUGS (1)
  1. SAVELLA [Suspect]
     Indication: FIBROMYALGIA
     Dosage: 25 MG
     Route: 048
     Dates: start: 20100201, end: 20111202

REACTIONS (13)
  - TOOTH EXTRACTION [None]
  - HYPERHIDROSIS [None]
  - CONDITION AGGRAVATED [None]
  - NAUSEA [None]
  - DEHYDRATION [None]
  - VOMITING [None]
  - PANIC ATTACK [None]
  - SUICIDE ATTEMPT [None]
  - DENTAL CARIES [None]
  - HYPOTENSION [None]
  - EMOTIONAL DISORDER [None]
  - HYPERTENSIVE CRISIS [None]
  - TOOTH LOSS [None]
